FAERS Safety Report 15950810 (Version 1)
Quarter: 2019Q1

REPORT INFORMATION
  Report Type: Spontaneous
  Country: NA (occurrence: NA)
  Receive Date: 20190212
  Receipt Date: 20190212
  Transmission Date: 20190417
  Serious: Yes (Life-Threatening)
  Sender: FDA-Public Use
  Company Number: NA-FRESENIUS KABI-FK201901542

PATIENT
  Age: 16 Year
  Sex: Male

DRUGS (3)
  1. MORPHINE (MANUFACTURER UNKNOWN) [Suspect]
     Active Substance: MORPHINE
     Indication: SPINAL ANAESTHESIA
     Route: 065
  2. KETAMINE [Concomitant]
     Active Substance: KETAMINE
     Indication: SPINAL ANAESTHESIA
     Route: 065
  3. MIDAZOLAM [Concomitant]
     Active Substance: MIDAZOLAM HYDROCHLORIDE
     Indication: SPINAL ANAESTHESIA
     Route: 042

REACTIONS (3)
  - Acute respiratory distress syndrome [Recovered/Resolved]
  - Anaphylactic reaction [Recovered/Resolved]
  - Shock [Recovered/Resolved]
